FAERS Safety Report 25962785 (Version 1)
Quarter: 2025Q4

REPORT INFORMATION
  Report Type: Spontaneous
  Country: EU (occurrence: EU)
  Receive Date: 20251027
  Receipt Date: 20251027
  Transmission Date: 20260118
  Serious: Yes (Hospitalization)
  Sender: JOHNSON AND JOHNSON
  Company Number: EU-JNJFOC-20251025696

PATIENT

DRUGS (1)
  1. TECLISTAMAB [Suspect]
     Active Substance: TECLISTAMAB
     Indication: Renal failure
     Dosage: DAY 1-0.06 MG/KG, DAY 3-0.3 MG/KG, DAY 5-1.5 MG/KG, MAINTENANCE-1.5 MG/KG, 20 WEEKS WEEKLY, THEN WIT
     Route: 065
     Dates: start: 202407

REACTIONS (4)
  - Road traffic accident [Unknown]
  - Gastrointestinal haemorrhage [Unknown]
  - Lymphopenia [Unknown]
  - Off label use [Unknown]
